FAERS Safety Report 24932628 (Version 1)
Quarter: 2025Q1

REPORT INFORMATION
  Report Type: Report from Study
  Country: IE (occurrence: IE)
  Receive Date: 20250205
  Receipt Date: 20250205
  Transmission Date: 20250409
  Serious: No
  Sender: EXELIXIS
  Company Number: IE-IPSEN Group, Research and Development-2024-17597

PATIENT
  Age: 68 Year
  Sex: Male

DRUGS (16)
  1. CABOMETYX [Suspect]
     Active Substance: CABOZANTINIB S-MALATE
     Indication: Rectal cancer metastatic
     Dosage: 20 MG, QD
     Route: 048
     Dates: start: 20240423
  2. CABOMETYX [Suspect]
     Active Substance: CABOZANTINIB S-MALATE
     Indication: Off label use
  3. CALCIUM\CHOLECALCIFEROL [Concomitant]
     Active Substance: CALCIUM\CHOLECALCIFEROL
     Route: 050
  4. DEXAMETHASONE [Concomitant]
     Active Substance: DEXAMETHASONE
     Route: 050
  5. XGEVA [Concomitant]
     Active Substance: DENOSUMAB
     Route: 050
  6. Solpadeine [Concomitant]
     Route: 050
  7. TAMSULOSIN [Concomitant]
     Active Substance: TAMSULOSIN
     Route: 050
  8. Nu seals aspirin [Concomitant]
     Route: 050
  9. PANTOPRAZOLE [Concomitant]
     Active Substance: PANTOPRAZOLE
     Route: 050
  10. SERTRALINE [Concomitant]
     Active Substance: SERTRALINE HYDROCHLORIDE
     Route: 050
  11. CYCLIZINE [Concomitant]
     Active Substance: CYCLIZINE
     Route: 050
  12. IMODIUM [Concomitant]
     Active Substance: LOPERAMIDE HYDROCHLORIDE
     Route: 050
  13. XARELTO [Concomitant]
     Active Substance: RIVAROXABAN
     Route: 050
  14. CODEINE [Concomitant]
     Active Substance: CODEINE
     Route: 050
  15. CYCLIZINE [Concomitant]
     Active Substance: CYCLIZINE
     Route: 050
  16. ROSUVASTATIN [Concomitant]
     Active Substance: ROSUVASTATIN
     Dosage: 5 MG AT NIGHT
     Route: 050

REACTIONS (2)
  - COVID-19 [Unknown]
  - Off label use [Unknown]

NARRATIVE: CASE EVENT DATE: 20240423
